FAERS Safety Report 20963682 (Version 1)
Quarter: 2022Q2

REPORT INFORMATION
  Report Type: Spontaneous
  Country: CN (occurrence: CN)
  Receive Date: 20220615
  Receipt Date: 20220615
  Transmission Date: 20220721
  Serious: Yes (Other)
  Sender: FDA-Public Use
  Company Number: None

PATIENT
  Age: 50 Year
  Weight: 64 kg

DRUGS (10)
  1. CYCLOPHOSPHAMIDE [Suspect]
     Active Substance: CYCLOPHOSPHAMIDE
     Indication: Breast cancer
     Dosage: TC REGIMEN, CYCLOPHOSPHAMIDE (ENDOXAN) 0.95 G + SODIUM CHLORIDE (NS) 100 ML
     Route: 041
     Dates: start: 20220422, end: 20220422
  2. CYCLOPHOSPHAMIDE [Suspect]
     Active Substance: CYCLOPHOSPHAMIDE
     Dosage: DOSE RE-INTRODUCED
     Route: 041
  3. SODIUM CHLORIDE [Suspect]
     Active Substance: SODIUM CHLORIDE
     Indication: Medication dilution
     Dosage: CYCLOPHOSPHAMIDE (ENDOXAN) 0.95 G + SODIUM CHLORIDE (NS) 100 ML
     Route: 041
     Dates: start: 20220422, end: 20220422
  4. SODIUM CHLORIDE [Suspect]
     Active Substance: SODIUM CHLORIDE
     Dosage: DOCETAXEL (TIANLUN) 120 MG + SODIUM CHLORIDE (NS) 250 ML
     Route: 041
     Dates: start: 20220422, end: 20220422
  5. SODIUM CHLORIDE [Suspect]
     Active Substance: SODIUM CHLORIDE
     Dosage: TRASTUZUMAB (HERCEPTIN) 510 MG + SODIUM CHLORIDE (NS) 250 ML
     Route: 041
     Dates: start: 20220421, end: 20220421
  6. SODIUM CHLORIDE [Suspect]
     Active Substance: SODIUM CHLORIDE
     Dosage: DOSE RE-INTRODUCED, CYCLOPHOSPHAMIDE (ENDOXAN) 0.95 G + SODIUM CHLORIDE (NS) 100 ML
     Route: 041
  7. SODIUM CHLORIDE [Suspect]
     Active Substance: SODIUM CHLORIDE
     Dosage: DOSE RE-INTRODUCED, DOCETAXEL (TIANLUN) 120 MG + SODIUM CHLORIDE (NS) 250 ML
     Route: 041
  8. SODIUM CHLORIDE [Suspect]
     Active Substance: SODIUM CHLORIDE
     Dosage: DOSE RE-INTRODUCED,TRASTUZUMAB (HERCEPTIN) 510 MG + SODIUM CHLORIDE (NS) 250 ML
     Route: 041
  9. HERCEPTIN [Suspect]
     Active Substance: TRASTUZUMAB
     Indication: Breast cancer
     Dosage: 510 MG, QD, DISSOLVED IN NS 250ML
     Route: 041
     Dates: start: 20220421, end: 20220421
  10. HERCEPTIN [Suspect]
     Active Substance: TRASTUZUMAB
     Dosage: DOSE RE-INTRODUCED
     Route: 041

REACTIONS (1)
  - Agranulocytosis [Recovering/Resolving]

NARRATIVE: CASE EVENT DATE: 20220429
